FAERS Safety Report 9055137 (Version 1)
Quarter: 2013Q1

REPORT INFORMATION
  Report Type: Spontaneous
  Country: US (occurrence: US)
  Receive Date: 20130206
  Receipt Date: 20130206
  Transmission Date: 20140127
  Serious: Yes (Death)
  Sender: FDA-Public Use
  Company Number: US-ASTELLAS-2013US001349

PATIENT
  Sex: Female

DRUGS (2)
  1. TARCEVA [Suspect]
     Indication: NON-SMALL CELL LUNG CANCER METASTATIC
     Dosage: 150 MG, QOD
     Route: 048
     Dates: start: 20090330
  2. TARCEVA [Suspect]
     Indication: MALIGNANT MEDIASTINAL NEOPLASM

REACTIONS (2)
  - Inappropriate schedule of drug administration [Unknown]
  - Non-small cell lung cancer metastatic [Fatal]
